FAERS Safety Report 13227823 (Version 1)
Quarter: 2017Q1

REPORT INFORMATION
  Report Type: Spontaneous
  Country: US (occurrence: US)
  Receive Date: 20170213
  Receipt Date: 20170213
  Transmission Date: 20170428
  Serious: No
  Sender: FDA-Public Use
  Company Number: US-APOTEX-2016AP014541

PATIENT

DRUGS (2)
  1. CYCLOBENZAPRINE [Concomitant]
     Active Substance: CYCLOBENZAPRINE
     Indication: PRODUCT USED FOR UNKNOWN INDICATION
     Route: 065
  2. GLIPIZIDE. [Suspect]
     Active Substance: GLIPIZIDE
     Indication: BLOOD GLUCOSE ABNORMAL
     Dosage: 10 MG, BID, BEFORE MEALS
     Route: 065

REACTIONS (5)
  - Nausea [Recovered/Resolved]
  - Blood glucose increased [Unknown]
  - Therapeutic response changed [Not Recovered/Not Resolved]
  - Drug ineffective [Recovered/Resolved]
  - Medication error [Unknown]
